FAERS Safety Report 13694046 (Version 1)
Quarter: 2017Q2

REPORT INFORMATION
  Report Type: Spontaneous
  Country: US (occurrence: US)
  Receive Date: 20170626
  Receipt Date: 20170626
  Transmission Date: 20170830
  Serious: Yes (Other)
  Sender: FDA-Public Use
  Company Number: None

PATIENT
  Age: 60 Year
  Sex: Male
  Weight: 99 kg

DRUGS (5)
  1. CRESTOR [Concomitant]
     Active Substance: ROSUVASTATIN CALCIUM
  2. INSULIN PUMP [Concomitant]
     Active Substance: INSULIN NOS
  3. CYMBALTA [Suspect]
     Active Substance: DULOXETINE HYDROCHLORIDE
     Indication: DIABETIC NEUROPATHY
     Dosage: ?          OTHER STRENGTH:MG;QUANTITY:30 CAPSULE(S);?
     Route: 048
  4. HUMALOG [Concomitant]
     Active Substance: INSULIN LISPRO
  5. XIDGUO [Concomitant]

REACTIONS (4)
  - Vomiting [None]
  - Nausea [None]
  - Malaise [None]
  - Hyperhidrosis [None]

NARRATIVE: CASE EVENT DATE: 20160601
